FAERS Safety Report 5510382-5 (Version None)
Quarter: 2007Q4

REPORT INFORMATION
  Report Type: 
  Country: None (occurrence: None)
  Receive Date: 20071108
  Receipt Date: 20071031
  Transmission Date: 20080405
  Serious: Yes (Other)
  Sender: FDA-Public Use
  Company Number: GB-ASTRAZENECA-2007AC02120

PATIENT
  Age: 51 Year
  Sex: Female

DRUGS (3)
  1. BUPIVACAINE [Suspect]
     Indication: POSTOPERATIVE ANALGESIA
     Route: 034
  2. ADRENALINE [Suspect]
     Indication: POSTOPERATIVE ANALGESIA
     Route: 034
  3. MORPHINE [Concomitant]
     Indication: POSTOPERATIVE ANALGESIA
     Dosage: PCA

REACTIONS (2)
  - NERVE BLOCK [None]
  - VENTRICULAR ASYSTOLE [None]
